FAERS Safety Report 6148958-7 (Version None)
Quarter: 2009Q2

REPORT INFORMATION
  Report Type: 
  Country: None (occurrence: None)
  Receive Date: 20090406
  Receipt Date: 20090323
  Transmission Date: 20091009
  Serious: Yes (Hospitalization)
  Sender: FDA-Public Use
  Company Number: DSA_33413_2009

PATIENT
  Age: 86 Year
  Sex: Female

DRUGS (5)
  1. ENALAPRIL MALEATE [Suspect]
     Indication: HYPERTENSION
     Dosage: 5 MG QD ORAL
     Route: 048
  2. FUROSEMIDE [Suspect]
     Indication: HYPERTENSION
     Dosage: 40 MG QD ORAL
     Route: 048
  3. ACENOCOUMAROL [Concomitant]
  4. FOSAMAX [Concomitant]
  5. LANSOPRAZOLE [Concomitant]

REACTIONS (10)
  - CARDIAC FAILURE [None]
  - CAROTID ARTERY STENOSIS [None]
  - FALL [None]
  - ILIUM FRACTURE [None]
  - ORTHOSTATIC HYPOTENSION [None]
  - PELVIC FRACTURE [None]
  - PNEUMONIA [None]
  - RHABDOMYOLYSIS [None]
  - SUPRAVENTRICULAR EXTRASYSTOLES [None]
  - SUPRAVENTRICULAR TACHYCARDIA [None]
